FAERS Safety Report 8678921 (Version 2)
Quarter: 2012Q4

REPORT INFORMATION
  Report Type: Report from Study
  Country: US (occurrence: US)
  Receive Date: 20120723
  Receipt Date: 20121109
  Transmission Date: 20130627
  Serious: Yes (Hospitalization, Other)
  Sender: FDA-Public Use
  Company Number: US-ABBOTT-12P-163-0956768-00

PATIENT
  Age: 50 Year
  Sex: Male
  Weight: 78.09 kg

DRUGS (10)
  1. HUMIRA 40 MG/0.8 ML PEN [Suspect]
     Indication: CROHN^S DISEASE
     Route: 058
     Dates: start: 201102, end: 201204
  2. MOBIC [Concomitant]
     Indication: BACK PAIN
  3. MOBIC [Concomitant]
     Indication: ANKYLOSING SPONDYLITIS
  4. OXYCONTIN [Concomitant]
     Indication: PAIN
  5. OXYCODONE [Concomitant]
     Indication: PAIN
  6. COLESTID [Concomitant]
     Indication: GASTROINTESTINAL MOTILITY DISORDER
  7. VITAMIN D [Concomitant]
     Indication: PRODUCT USED FOR UNKNOWN INDICATION
  8. VITAMIN C [Concomitant]
     Indication: PRODUCT USED FOR UNKNOWN INDICATION
  9. IRON [Concomitant]
     Indication: PRODUCT USED FOR UNKNOWN INDICATION
  10. MULTIPLE VITAMINS [Concomitant]
     Indication: PRODUCT USED FOR UNKNOWN INDICATION

REACTIONS (7)
  - Gastrointestinal injury [Recovering/Resolving]
  - Spinal fracture [Recovering/Resolving]
  - Intestinal resection [Recovering/Resolving]
  - Abdominal pain [Recovered/Resolved]
  - Biliary drainage [Recovered/Resolved]
  - Cholecystectomy [Recovered/Resolved]
  - Road traffic accident [Recovering/Resolving]
